FAERS Safety Report 6696949-X (Version None)
Quarter: 2010Q2

REPORT INFORMATION
  Report Type: 
  Country: None (occurrence: None)
  Receive Date: 20100426
  Receipt Date: 20100416
  Transmission Date: 20101027
  Serious: Yes (Other)
  Sender: FDA-Public Use
  Company Number: PHHY2009CA15595

PATIENT
  Sex: Female

DRUGS (9)
  1. EXJADE [Suspect]
     Indication: ANAEMIA
     Dosage: 1250 MG, QD
     Route: 048
     Dates: start: 20090309, end: 20100309
  2. CALCIUM [Concomitant]
     Dosage: 2 DF, QD
  3. ACTONEL [Concomitant]
     Dosage: 3.5 MG, 1 DF, UNK
     Route: 048
  4. HALIBUT [Concomitant]
     Dosage: 2 TABLETS DAILY
     Route: 048
  5. WARFARIN SODIUM [Concomitant]
     Dosage: 3 MG, 1 TABLET ONE DAY
     Route: 048
  6. WARFARIN SODIUM [Concomitant]
     Dosage: 2 MG, 1 TABLET NEXT DAY
     Route: 048
  7. PROVERA [Concomitant]
     Dosage: 1 DF, UNK
     Route: 048
  8. PARIET [Concomitant]
     Dosage: 20 MG, 1 DFDAILY, UNK
     Route: 048
  9. COUMADIN [Concomitant]

REACTIONS (5)
  - BACK PAIN [None]
  - HEPATIC ENZYME INCREASED [None]
  - NEPHROLITHIASIS [None]
  - PAIN [None]
  - RENAL FUNCTION TEST ABNORMAL [None]
